FAERS Safety Report 7023791-2 (Version None)
Quarter: 2010Q4

REPORT INFORMATION
  Report Type: 
  Country: None (occurrence: None)
  Receive Date: 20101001
  Receipt Date: 20100920
  Transmission Date: 20110411
  Serious: Yes (Other)
  Sender: FDA-Public Use
  Company Number: ES-JNJFOC-20100906946

PATIENT
  Sex: Male

DRUGS (2)
  1. REMICADE [Suspect]
     Indication: ANKYLOSING SPONDYLITIS
     Dosage: RECEIVED FOR 3-4 YEARS
     Route: 042
  2. METHOTREXATE [Concomitant]

REACTIONS (2)
  - GENITAL HERPES [None]
  - HEPATITIS C [None]
